FAERS Safety Report 18770032 (Version 1)
Quarter: 2021Q1

REPORT INFORMATION
  Report Type: Spontaneous
  Country: CA (occurrence: CA)
  Receive Date: 20210122
  Receipt Date: 20210122
  Transmission Date: 20210419
  Serious: Yes (Hospitalization)
  Sender: FDA-Public Use
  Company Number: CA-TEVA-2021-CA-1870786

PATIENT
  Age: 69 Year
  Sex: Female
  Weight: 61 kg

DRUGS (16)
  1. CYCLOPHOSPHAMIDE. [Suspect]
     Active Substance: CYCLOPHOSPHAMIDE
     Route: 065
  2. CARBOXYMETHYCELLULOSE [Concomitant]
  3. EMEND [Suspect]
     Active Substance: APREPITANT
     Indication: BREAST CANCER METASTATIC
     Route: 065
  4. CITALOPRAM [Concomitant]
     Active Substance: CITALOPRAM HYDROBROMIDE
  5. DOMPERIDONE [Concomitant]
     Active Substance: DOMPERIDONE
  6. VITAMIN D3 [Concomitant]
     Active Substance: CHOLECALCIFEROL
  7. SYNTHROID [Concomitant]
     Active Substance: LEVOTHYROXINE SODIUM
  8. DEXAMETHASONE. [Suspect]
     Active Substance: DEXAMETHASONE
     Route: 065
  9. CLONAZEPAM. [Concomitant]
     Active Substance: CLONAZEPAM
  10. RESTORIL [Concomitant]
     Active Substance: TEMAZEPAM
  11. EPIRUBICIN HYDROCHLORIDE INJECTION [Suspect]
     Active Substance: EPIRUBICIN HYDROCHLORIDE
     Indication: BREAST CANCER METASTATIC
     Route: 065
  12. FRAGMIN [Concomitant]
     Active Substance: DALTEPARIN SODIUM
  13. PANTOPRAZOLE [Concomitant]
     Active Substance: PANTOPRAZOLE
  14. LORAZEPAM. [Suspect]
     Active Substance: LORAZEPAM
     Indication: BREAST CANCER METASTATIC
     Route: 065
  15. ONDANSETRON [Suspect]
     Active Substance: ONDANSETRON
     Indication: BREAST CANCER METASTATIC
     Route: 065
  16. LAX?A?DAY [Concomitant]
     Active Substance: POLYETHYLENE GLYCOL 3350

REACTIONS (1)
  - Febrile neutropenia [Recovered/Resolved]
